FAERS Safety Report 23654615 (Version 1)
Quarter: 2024Q1

REPORT INFORMATION
  Report Type: Report from Study
  Country: US (occurrence: US)
  Receive Date: 20240320
  Receipt Date: 20240320
  Transmission Date: 20240410
  Serious: Yes (Hospitalization)
  Sender: FDA-Public Use
  Company Number: US-Eisai-EC-2024-161870

PATIENT
  Age: 56 Year
  Sex: Male

DRUGS (17)
  1. LENVIMA [Suspect]
     Active Substance: LENVATINIB
     Indication: Thyroid cancer
     Route: 048
     Dates: start: 20201120, end: 2021
  2. LENVIMA [Suspect]
     Active Substance: LENVATINIB
     Indication: Metastasis
     Route: 048
     Dates: start: 202103, end: 202402
  3. TRAZODONE [Concomitant]
     Active Substance: TRAZODONE HYDROCHLORIDE
  4. TOPAMAX [Concomitant]
     Active Substance: TOPIRAMATE
  5. VITAMIN D [Concomitant]
     Active Substance: VITAMIN D NOS
  6. ACETAMINOPHEN [Concomitant]
     Active Substance: ACETAMINOPHEN
  7. CALCITRIOL [Concomitant]
     Active Substance: CALCITRIOL
  8. GABAPENTIN [Concomitant]
     Active Substance: GABAPENTIN
  9. SYNTHROID [Concomitant]
     Active Substance: LEVOTHYROXINE SODIUM
  10. CITALOPRAM [Concomitant]
     Active Substance: CITALOPRAM\CITALOPRAM HYDROBROMIDE
  11. ACETAMINOPHEN\HYDROCODONE [Concomitant]
     Active Substance: ACETAMINOPHEN\HYDROCODONE
  12. ALBUTEROL [Concomitant]
     Active Substance: ALBUTEROL
  13. ASPIRIN [Concomitant]
     Active Substance: ASPIRIN
  14. DESVENLAFAXINE [Concomitant]
     Active Substance: DESVENLAFAXINE
  15. ESOMEPRAZOLE [Concomitant]
     Active Substance: ESOMEPRAZOLE
  16. METFORMIN [Concomitant]
     Active Substance: METFORMIN HYDROCHLORIDE
  17. LEVOTHYROXINE [Concomitant]
     Active Substance: LEVOTHYROXINE\LEVOTHYROXINE SODIUM

REACTIONS (7)
  - Wound [Not Recovered/Not Resolved]
  - Impaired healing [Not Recovered/Not Resolved]
  - Blood pressure increased [Unknown]
  - Staphylococcal infection [Unknown]
  - Rash [Unknown]
  - Peripheral swelling [Unknown]
  - Joint dislocation [Unknown]

NARRATIVE: CASE EVENT DATE: 20240201
